FAERS Safety Report 6997631-1 (Version None)
Quarter: 2010Q3

REPORT INFORMATION
  Report Type: 
  Country: None (occurrence: None)
  Receive Date: 20100918
  Receipt Date: 20091110
  Transmission Date: 20110219
  Serious: No
  Sender: FDA-Public Use
  Company Number: US-WYE-H12143509

PATIENT
  Age: 73 Year
  Sex: Female
  Weight: 86.26 kg

DRUGS (2)
  1. ADVIL PM [Suspect]
     Indication: INSOMNIA
     Dosage: 1 CAPLET X 1
     Route: 048
     Dates: start: 20091109, end: 20091109
  2. ADVIL PM [Suspect]
     Indication: PAIN

REACTIONS (2)
  - ABNORMAL DREAMS [None]
  - FEELING JITTERY [None]
